FAERS Safety Report 7635848-3 (Version None)
Quarter: 2011Q3

REPORT INFORMATION
  Report Type: 
  Country: None (occurrence: None)
  Receive Date: 20110726
  Receipt Date: 20110714
  Transmission Date: 20111222
  Serious: Yes (Other)
  Sender: FDA-Public Use
  Company Number: US-JNJFOC-20110610240

PATIENT
  Sex: Female
  Weight: 71.67 kg

DRUGS (4)
  1. REMICADE [Suspect]
     Indication: RHEUMATOID ARTHRITIS
     Route: 042
  2. ENBREL [Concomitant]
     Route: 065
  3. LEFLUNOMIDE [Concomitant]
     Route: 065
  4. METFORMIN HCL [Concomitant]
     Indication: DIABETES MELLITUS
     Route: 065

REACTIONS (2)
  - VOMITING [None]
  - LOSS OF CONSCIOUSNESS [None]
